FAERS Safety Report 9150060 (Version 2)
Quarter: 2013Q1

REPORT INFORMATION
  Report Type: Report from Study
  Country: JP (occurrence: JP)
  Receive Date: 20130308
  Receipt Date: 20130318
  Transmission Date: 20140127
  Serious: Yes (Hospitalization)
  Sender: FDA-Public Use
  Company Number: JP-PFIZER INC-2013080758

PATIENT
  Age: 47 Year
  Sex: Male
  Weight: 66.6 kg

DRUGS (8)
  1. AXITINIB [Suspect]
     Indication: HEPATOCELLULAR CARCINOMA
     Dosage: 3 MG, 2X/DAY
     Route: 048
     Dates: start: 20120210, end: 20120810
  2. AXITINIB [Suspect]
     Dosage: 3 MG, 2X/DAY
     Route: 048
     Dates: start: 20120815, end: 20130223
  3. AXITINIB [Suspect]
     Dosage: 2 MG, 2X/DAY
     Dates: start: 20130306
  4. BLOPRESS [Concomitant]
     Indication: HYPERTENSION
     Dosage: 12 MG, 1X/DAY
     Route: 048
     Dates: start: 20120217
  5. BARACLUDE [Concomitant]
     Indication: CHRONIC HEPATITIS B
     Dosage: 0.5 MG, 1X/DAY
     Route: 048
     Dates: start: 20080304
  6. DEPAKENE [Concomitant]
     Indication: EPILEPSY
     Dosage: 600 MG, 2X/DAY
     Route: 048
     Dates: start: 20120713, end: 20130223
  7. ALLEGRA [Concomitant]
     Indication: RASH
     Dosage: 60 MG, 2X/DAY
     Route: 048
     Dates: start: 20120413
  8. HIRUDOID [Concomitant]
     Indication: RASH
     Dosage: UNK
     Route: 061
     Dates: start: 20120222

REACTIONS (1)
  - Epilepsy [Recovering/Resolving]
